FAERS Safety Report 5961324-X (Version None)
Quarter: 2008Q4

REPORT INFORMATION
  Report Type: 
  Country: None (occurrence: None)
  Receive Date: 20081121
  Receipt Date: 20081113
  Transmission Date: 20090506
  Serious: Yes (Hospitalization)
  Sender: FDA-Public Use
  Company Number: GB-ROCHE-597357

PATIENT
  Sex: Female
  Weight: 127 kg

DRUGS (9)
  1. ORLISTAT [Suspect]
     Indication: OBESITY
     Route: 048
     Dates: start: 20080604, end: 20080901
  2. ASPIRIN [Concomitant]
     Indication: ANTICOAGULANT THERAPY
     Dosage: PATIENT TAKING ASPIRIN AS PART OF A STUDY/TRIAL.
     Route: 048
     Dates: start: 20080501
  3. NITROGLYCERIN [Concomitant]
     Indication: ANGINA PECTORIS
     Dosage: SPRAY
     Dates: start: 20080501
  4. CARDICOR [Concomitant]
     Indication: ANGINA PECTORIS
     Dosage: ALSO INDICATION FOR HYPERTENSION
     Route: 048
  5. CIPRALEX [Concomitant]
     Indication: DEPRESSION
     Dosage: REPORTED AS CIPRILEX
     Route: 048
  6. SPIRONOLACTONE [Concomitant]
     Indication: ANGINA PECTORIS
     Dosage: ALSO INDICATED FOR HYPERTENSION
     Route: 052
  7. RAMIPRIL [Concomitant]
     Indication: HYPERTENSION
     Dosage: REPORTED AS 10 MG ONCE
     Route: 048
  8. FUROSEMIDE [Concomitant]
     Route: 048
  9. SIMVASTATIN [Concomitant]
     Route: 048

REACTIONS (2)
  - ARTHRITIS INFECTIVE [None]
  - CARDIAC DISORDER [None]
